FAERS Safety Report 8861051 (Version 1)
Quarter: 2012Q4

REPORT INFORMATION
  Report Type: 
  Country: US (occurrence: US)
  Receive Date: 20121025
  Receipt Date: 20121025
  Transmission Date: 20130627
  Serious: No
  Sender: FDA-Public Use
  Company Number: US-B.I. PHARMACEUTICALS,INC./RIDGEFIELD-2012-BP-26030BP

PATIENT
  Age: 77 None
  Sex: Female
  Weight: 64 kg

DRUGS (6)
  1. SPIRIVA [Suspect]
     Indication: ASTHMA
     Dosage: 18 mcg
     Route: 055
     Dates: start: 201205
  2. CALTRATE WITH VITAMIN D [Concomitant]
     Indication: SUPPLEMENTATION THERAPY
     Route: 048
  3. SIMVASTATIN [Concomitant]
     Indication: BLOOD CHOLESTEROL INCREASED
     Dosage: 10 mg
     Route: 048
  4. FISH OIL [Concomitant]
     Indication: SUPPLEMENTATION THERAPY
     Route: 048
  5. WOMENS DAILY VITAMIN [Concomitant]
     Indication: SUPPLEMENTATION THERAPY
     Route: 048
  6. BAYER LOW DOSE ASPIRIN [Concomitant]
     Indication: MITRAL VALVE PROLAPSE
     Dosage: 81 mg
     Route: 048
     Dates: start: 1992

REACTIONS (2)
  - Candidiasis [Recovered/Resolved]
  - Increased upper airway secretion [Not Recovered/Not Resolved]
